FAERS Safety Report 12569390 (Version 2)
Quarter: 2016Q3

REPORT INFORMATION
  Report Type: Spontaneous
  Country: US (occurrence: US)
  Receive Date: 20160719
  Receipt Date: 20160811
  Transmission Date: 20161109
  Serious: No
  Sender: FDA-Public Use
  Company Number: US-PFIZER INC-2016318443

PATIENT
  Age: 70 Year
  Sex: Female

DRUGS (1)
  1. TIGECYCLINE. [Suspect]
     Active Substance: TIGECYCLINE
     Dosage: UNK

REACTIONS (4)
  - Drug hypersensitivity [Unknown]
  - Diarrhoea [Unknown]
  - Headache [Unknown]
  - Drug intolerance [Unknown]
